FAERS Safety Report 13443558 (Version 1)
Quarter: 2017Q2

REPORT INFORMATION
  Report Type: Spontaneous
  Country: GB (occurrence: GB)
  Receive Date: 20170414
  Receipt Date: 20170414
  Transmission Date: 20170830
  Serious: Yes (Other)
  Sender: FDA-Public Use
  Company Number: GB-GLAXOSMITHKLINE-GB2017054202

PATIENT
  Age: 28 Year
  Sex: Male

DRUGS (1)
  1. BUPROPION. [Suspect]
     Active Substance: BUPROPION
     Indication: AGITATED DEPRESSION
     Dosage: UNK
     Route: 048
     Dates: start: 20170214, end: 20170314

REACTIONS (2)
  - Retinal depigmentation [Recovering/Resolving]
  - Visual field defect [Unknown]

NARRATIVE: CASE EVENT DATE: 20170301
